FAERS Safety Report 20234038 (Version 1)
Quarter: 2021Q4

REPORT INFORMATION
  Report Type: Spontaneous
  Country: FR (occurrence: FR)
  Receive Date: 20211227
  Receipt Date: 20211227
  Transmission Date: 20220304
  Serious: Yes (Life-Threatening)
  Sender: FDA-Public Use
  Company Number: FR-BoehringerIngelheim-2021-BI-145564

PATIENT
  Age: 48 Year
  Sex: Female
  Weight: 122 kg

DRUGS (1)
  1. CLONIDINE [Suspect]
     Active Substance: CLONIDINE
     Indication: Agitation
     Dosage: 0.6 MG/24H IVSE, SOLUTION INJECTABLE
     Dates: start: 20211014, end: 20211016

REACTIONS (2)
  - Paroxysmal atrioventricular block [Recovered/Resolved with Sequelae]
  - Conduction disorder [Recovered/Resolved with Sequelae]

NARRATIVE: CASE EVENT DATE: 20211016
